FAERS Safety Report 5657978-8 (Version None)
Quarter: 2008Q1

REPORT INFORMATION
  Report Type: 
  Country: None (occurrence: None)
  Receive Date: 20080310
  Receipt Date: 20080306
  Transmission Date: 20080703
  Serious: Yes (Death, Other)
  Sender: FDA-Public Use
  Company Number: PHHY2008JP02294

PATIENT
  Age: 19 Month
  Sex: Female
  Weight: 9.9 kg

DRUGS (3)
  1. SIMULECT [Suspect]
     Indication: LIVER AND SMALL INTESTINE TRANSPLANT
     Route: 042
  2. PROGRAF [Suspect]
     Indication: LIVER AND SMALL INTESTINE TRANSPLANT
  3. STEROIDS NOS [Concomitant]
     Indication: IMMUNOSUPPRESSANT DRUG THERAPY

REACTIONS (7)
  - CHOLANGITIS [None]
  - EPSTEIN-BARR VIRUS INFECTION [None]
  - HEPATIC STEATOSIS [None]
  - INTESTINAL VILLI ATROPHY [None]
  - LYMPHOPROLIFERATIVE DISORDER [None]
  - MUCOSAL EXFOLIATION [None]
  - SEPTIC SHOCK [None]
